FAERS Safety Report 21197617 (Version 1)
Quarter: 2022Q3

REPORT INFORMATION
  Report Type: Spontaneous
  Country: GB (occurrence: GB)
  Receive Date: 20220810
  Receipt Date: 20220810
  Transmission Date: 20221026
  Serious: Yes (Other)
  Sender: FDA-Public Use
  Company Number: GB-JNJFOC-20220807292

PATIENT
  Age: 30 Year
  Sex: Female

DRUGS (1)
  1. TOPAMAX [Suspect]
     Active Substance: TOPIRAMATE
     Indication: Migraine
     Dosage: 100 MG NOCTE
     Route: 048

REACTIONS (3)
  - Papilloedema [Unknown]
  - Weight decreased [Unknown]
  - Weight increased [Unknown]
